FAERS Safety Report 15820772 (Version 1)
Quarter: 2019Q1

REPORT INFORMATION
  Report Type: Spontaneous
  Country: US (occurrence: US)
  Receive Date: 20190114
  Receipt Date: 20190114
  Transmission Date: 20190417
  Serious: No
  Sender: FDA-Public Use
  Company Number: US-SA-2019SA008168

PATIENT
  Age: 64 Year
  Sex: Male

DRUGS (12)
  1. POLYETHYLENE GLYCOL [Concomitant]
     Active Substance: POLYETHYLENE GLYCOLS
  2. METOPROLOL. [Concomitant]
     Active Substance: METOPROLOL
  3. VOLTAREN [DICLOFENAC] [Concomitant]
     Active Substance: DICLOFENAC SODIUM
  4. LOSARTAN. [Concomitant]
     Active Substance: LOSARTAN
  5. OMEPRAZOLE. [Concomitant]
     Active Substance: OMEPRAZOLE
  6. ATORVASTATIN [Concomitant]
     Active Substance: ATORVASTATIN
  7. PRALUENT [Suspect]
     Active Substance: ALIROCUMAB
     Dosage: 75 MG, QOW
     Route: 058
     Dates: start: 20160909
  8. BUPROPION. [Concomitant]
     Active Substance: BUPROPION
  9. DOCQLACE [Concomitant]
     Active Substance: DOCUSATE SODIUM
  10. FINASTERIDE. [Concomitant]
     Active Substance: FINASTERIDE
  11. CEPHALEXIN [CEFALEXIN] [Concomitant]
     Active Substance: CEPHALEXIN
  12. CIPROFLOXACIN. [Concomitant]
     Active Substance: CIPROFLOXACIN

REACTIONS (1)
  - Back pain [Unknown]

NARRATIVE: CASE EVENT DATE: 20190104
